FAERS Safety Report 14370972 (Version 4)
Quarter: 2018Q1

REPORT INFORMATION
  Report Type: Report from Study
  Country: US (occurrence: US)
  Receive Date: 20180110
  Receipt Date: 20180226
  Transmission Date: 20180509
  Serious: Yes (Hospitalization)
  Sender: FDA-Public Use
  Company Number: US-AMGEN-USASL2017185728

PATIENT
  Age: 74 Year
  Sex: Female

DRUGS (2)
  1. REPATHA [Suspect]
     Active Substance: EVOLOCUMAB
     Indication: BLOOD CHOLESTEROL INCREASED
     Dosage: UNK
     Route: 065
  2. REPATHA [Suspect]
     Active Substance: EVOLOCUMAB
     Indication: HYPERCHOLESTEROLAEMIA
     Dosage: 140 MG, Q2WK
     Route: 065
     Dates: start: 20171207

REACTIONS (19)
  - Headache [Unknown]
  - Back pain [Unknown]
  - Myalgia [Unknown]
  - Insomnia [Unknown]
  - Hypoacusis [Unknown]
  - Malaise [Unknown]
  - Pain [Unknown]
  - Underdose [Unknown]
  - Productive cough [Unknown]
  - Grip strength decreased [Unknown]
  - Neck pain [Unknown]
  - Dysphagia [Unknown]
  - Mobility decreased [Unknown]
  - Injection site pain [Unknown]
  - Fear of injection [Unknown]
  - Musculoskeletal pain [Unknown]
  - Accidental exposure to product [Unknown]
  - Arthralgia [Unknown]
  - Nasopharyngitis [Unknown]

NARRATIVE: CASE EVENT DATE: 201712
